FAERS Safety Report 6802562-3 (Version None)
Quarter: 2010Q2

REPORT INFORMATION
  Report Type: 
  Country: None (occurrence: None)
  Receive Date: 20100629
  Receipt Date: 20090218
  Transmission Date: 20101027
  Serious: No
  Sender: FDA-Public Use
  Company Number: US-PFIZER INC-2005058340

PATIENT
  Sex: Male
  Weight: 86.2 kg

DRUGS (9)
  1. VIAGRA [Suspect]
     Indication: ERECTILE DYSFUNCTION
     Dosage: 50 MG, AS NEEDED
     Route: 048
     Dates: start: 20050101
  2. NORVASC [Concomitant]
     Indication: HYPERTENSION
     Route: 065
  3. ZOLOFT [Concomitant]
     Route: 065
  4. AMARYL [Concomitant]
     Route: 065
  5. ALEVE (CAPLET) [Concomitant]
     Route: 065
  6. ZETIA [Concomitant]
     Route: 065
  7. TOPROL-XL [Concomitant]
     Route: 065
  8. ASPIRIN [Concomitant]
     Route: 065
  9. AVALIDE [Concomitant]
     Route: 065

REACTIONS (2)
  - DRUG INEFFECTIVE [None]
  - ERECTILE DYSFUNCTION [None]
